FAERS Safety Report 21719705 (Version 1)
Quarter: 2022Q4

REPORT INFORMATION
  Report Type: Other
  Country: CA (occurrence: None)
  Receive Date: 20221213
  Receipt Date: 20221213
  Transmission Date: 20230113
  Serious: Yes (Other)
  Sender: FDA-Public Use
  Company Number: CA-ROCHE-2355308

PATIENT
  Age: 72 Year
  Sex: Male
  Weight: 125 kg

DRUGS (7)
  1. AVASTIN [Suspect]
     Active Substance: BEVACIZUMAB
     Indication: Hereditary haemorrhagic telangiectasia
     Route: 042
     Dates: start: 20190606, end: 20190801
  2. AVASTIN [Suspect]
     Active Substance: BEVACIZUMAB
     Route: 042
     Dates: start: 20190905, end: 20191205
  3. AVASTIN [Suspect]
     Active Substance: BEVACIZUMAB
     Route: 042
     Dates: start: 20200121, end: 20200709
  4. AVASTIN [Suspect]
     Active Substance: BEVACIZUMAB
     Route: 042
     Dates: start: 20210107
  5. AVASTIN [Suspect]
     Active Substance: BEVACIZUMAB
     Dosage: H0272B03 31-AUG-2022?H0292B11 31-JAN-2023
     Route: 042
     Dates: start: 20211004, end: 20220705
  6. AVASTIN [Suspect]
     Active Substance: BEVACIZUMAB
     Dosage: H0312B03, 30/SEP/2023
     Route: 042
     Dates: start: 20221003
  7. AVASTIN [Suspect]
     Active Substance: BEVACIZUMAB
     Route: 042
     Dates: start: 20201006, end: 20210708

REACTIONS (8)
  - Blood pressure diastolic decreased [Unknown]
  - Heart rate decreased [Unknown]
  - Weight increased [Not Recovered/Not Resolved]
  - Oxygen saturation decreased [Unknown]
  - Off label use [Unknown]
  - Body temperature decreased [Unknown]
  - Weight decreased [Unknown]
  - Drug effect less than expected [Unknown]

NARRATIVE: CASE EVENT DATE: 20190905
